FAERS Safety Report 21765411 (Version 1)
Quarter: 2022Q4

REPORT INFORMATION
  Report Type: Spontaneous
  Country: GB (occurrence: None)
  Receive Date: 20221222
  Receipt Date: 20221222
  Transmission Date: 20230113
  Serious: Yes (Hospitalization)
  Sender: FDA-Public Use
  Company Number: GB-MHRA-MED-202212121407138840-DNMFP

PATIENT
  Age: 35 Year
  Sex: Male

DRUGS (9)
  1. FLUOXETINE [Suspect]
     Active Substance: FLUOXETINE HYDROCHLORIDE
     Dosage: 20MG OD
  2. SOLIFENACIN [Suspect]
     Active Substance: SOLIFENACIN
     Dosage: 5MG ON
  3. RAMIPRIL [Suspect]
     Active Substance: RAMIPRIL
     Dosage: 5MG ON; ;
  4. BUPRENORPHINE [Suspect]
     Active Substance: BUPRENORPHINE
     Dosage: 10MCG WEEKLY; ;
  5. CLOBAZAM [Suspect]
     Active Substance: CLOBAZAM
     Dosage: 10MG ON; ;
  6. DIAZEPAM [Suspect]
     Active Substance: DIAZEPAM
     Dosage: 2MG OD
  7. LAMOTRIGINE [Suspect]
     Active Substance: LAMOTRIGINE
     Dosage: 100MG BD; ;
  8. OXYBUTYNIN [Suspect]
     Active Substance: OXYBUTYNIN
     Dosage: 20MG MR ON; ;
  9. PREGABALIN [Suspect]
     Active Substance: PREGABALIN
     Dosage: 300MG ON; ;

REACTIONS (1)
  - Fall [Recovering/Resolving]

NARRATIVE: CASE EVENT DATE: 20221205
